FAERS Safety Report 25235113 (Version 1)
Quarter: 2025Q2

REPORT INFORMATION
  Report Type: Spontaneous
  Country: US (occurrence: None)
  Receive Date: 20250423
  Receipt Date: 20250423
  Transmission Date: 20250717
  Serious: Yes (Disabling)
  Sender: FDA-CTU
  Company Number: None

PATIENT
  Age: 47 Year
  Sex: Male
  Weight: 103.5 kg

DRUGS (4)
  1. FINASTERIDE\MINOXIDIL [Suspect]
     Active Substance: FINASTERIDE\MINOXIDIL
     Indication: Alopecia
     Dates: start: 20240429, end: 20250422
  2. BIOTIN [Concomitant]
     Active Substance: BIOTIN
  3. VITAMINS [Concomitant]
     Active Substance: VITAMINS
  4. LYSINE [Concomitant]
     Active Substance: LYSINE

REACTIONS (1)
  - Tinnitus [None]

NARRATIVE: CASE EVENT DATE: 20250121
